FAERS Safety Report 9791661 (Version 1)
Quarter: 2014Q1

REPORT INFORMATION
  Report Type: Spontaneous
  Country: US (occurrence: US)
  Receive Date: 20140102
  Receipt Date: 20140102
  Transmission Date: 20141002
  Serious: No
  Sender: FDA-Public Use
  Company Number: US-009507513-1312USA012678

PATIENT
  Sex: Female
  Weight: 64.4 kg

DRUGS (5)
  1. ZETIA [Suspect]
     Route: 048
  2. PLAVIX [Concomitant]
  3. SYNTHROID [Concomitant]
  4. CLONIDINE [Concomitant]
  5. ZOLPIDEM TARTRATE [Concomitant]

REACTIONS (3)
  - Muscle atrophy [Unknown]
  - Myalgia [Unknown]
  - Muscular weakness [Unknown]
